FAERS Safety Report 16920168 (Version 2)
Quarter: 2019Q4

REPORT INFORMATION
  Report Type: Report from Study
  Country: CA (occurrence: CA)
  Receive Date: 20191015
  Receipt Date: 20191017
  Transmission Date: 20200122
  Serious: Yes (Other)
  Sender: FDA-Public Use
  Company Number: CA-JNJFOC-20190908555

PATIENT
  Age: 52 Year
  Sex: Female
  Weight: 54.6 kg

DRUGS (1)
  1. REMICADE [Suspect]
     Active Substance: INFLIXIMAB
     Indication: RHEUMATOID ARTHRITIS
     Dosage: STRENGTH = 100 MG
     Route: 042
     Dates: start: 20130703

REACTIONS (4)
  - Skin cancer [Recovering/Resolving]
  - Device breakage [Unknown]
  - Fall [Unknown]
  - Foot deformity [Unknown]

NARRATIVE: CASE EVENT DATE: 201908
